FAERS Safety Report 5917019-1 (Version None)
Quarter: 2008Q4

REPORT INFORMATION
  Report Type: 
  Country: None (occurrence: None)
  Receive Date: 20081010
  Receipt Date: 20081010
  Transmission Date: 20090506
  Serious: Yes (Other)
  Sender: FDA-Public Use
  Company Number: None

PATIENT
  Sex: Male
  Weight: 72.5755 kg

DRUGS (2)
  1. FLOMAX [Suspect]
     Indication: URINARY RETENTION
     Dosage: 1/3 CAP T.I.W. PO
     Route: 048
     Dates: start: 20070501, end: 20080701
  2. HYTRIN [Suspect]

REACTIONS (5)
  - IMPAIRED DRIVING ABILITY [None]
  - JOINT RANGE OF MOTION DECREASED [None]
  - MOVEMENT DISORDER [None]
  - MUSCLE SPASMS [None]
  - PAIN [None]
